FAERS Safety Report 23227463 (Version 1)
Quarter: 2023Q4

REPORT INFORMATION
  Report Type: Spontaneous
  Country: NL (occurrence: NL)
  Receive Date: 20231124
  Receipt Date: 20231124
  Transmission Date: 20240110
  Serious: Yes (Hospitalization)
  Sender: FDA-Public Use
  Company Number: NL-PFIZER INC-PV202300183170

PATIENT
  Age: 23 Year
  Sex: Female
  Weight: 126 kg

DRUGS (9)
  1. TOFACITINIB CITRATE [Suspect]
     Active Substance: TOFACITINIB CITRATE
     Indication: Blau syndrome
     Dosage: 5 MG, 2X/DAY
     Route: 048
     Dates: start: 20230501, end: 20231103
  2. ACETAZOLAMIDE [Concomitant]
     Active Substance: ACETAZOLAMIDE
     Indication: Intraocular pressure increased
     Dosage: 125 MG, 3X/DAY
  3. CALCIUM\CHOLECALCIFEROL [Concomitant]
     Active Substance: CALCIUM\CHOLECALCIFEROL
     Indication: Prophylaxis
     Dosage: 25 G, 1X/DAY
  4. CELLCEPT [Concomitant]
     Active Substance: MYCOPHENOLATE MOFETIL
     Indication: Blau syndrome
     Dosage: 250 MG, 2X/DAY
  5. DEXAMETHASONE [Concomitant]
     Active Substance: DEXAMETHASONE
     Dosage: 1 MG/1.5 MG, EVERY OTHER DAY
  6. FLUCLOXACILLIN [Concomitant]
     Active Substance: FLUCLOXACILLIN
     Indication: Skin ulcer
     Dosage: UNK
     Dates: start: 20231030, end: 20231105
  7. MICONAZOLE [Concomitant]
     Active Substance: MICONAZOLE
     Indication: Fungal skin infection
  8. PANTOPRAZOLE [Concomitant]
     Active Substance: PANTOPRAZOLE
  9. TIMOLOL + DORZOLAMIDA GENERIS [Concomitant]
     Indication: Intraocular pressure increased
     Dosage: 1 DROP, 2X/DAY

REACTIONS (4)
  - Fatigue [Not Recovered/Not Resolved]
  - Malaise [Not Recovered/Not Resolved]
  - Generalised oedema [Not Recovered/Not Resolved]
  - Off label use [Unknown]

NARRATIVE: CASE EVENT DATE: 20230701
